FAERS Safety Report 8054442-6 (Version None)
Quarter: 2012Q1

REPORT INFORMATION
  Report Type: 
  Country: None (occurrence: None)
  Receive Date: 20120118
  Receipt Date: 20120111
  Transmission Date: 20120608
  Serious: Yes (Hospitalization)
  Sender: FDA-Public Use
  Company Number: CA-ASTRAZENECA-2011SE77210

PATIENT
  Age: 87 Year
  Sex: Male

DRUGS (2)
  1. BETA-AGONIST [Concomitant]
     Indication: DYSPNOEA
  2. PULMICORT [Suspect]
     Route: 055

REACTIONS (1)
  - MYOCARDIAL INFARCTION [None]
